FAERS Safety Report 10184908 (Version 2)
Quarter: 2014Q2

REPORT INFORMATION
  Report Type: Spontaneous
  Country: FR (occurrence: FR)
  Receive Date: 20140521
  Receipt Date: 20140521
  Transmission Date: 20141212
  Serious: Yes (Hospitalization)
  Sender: FDA-Public Use
  Company Number: FR-ASTRAZENECA-2014SE31084

PATIENT
  Age: 794 Month
  Sex: Male

DRUGS (4)
  1. TRIATEC [Suspect]
     Indication: MYOCARDIAL INFARCTION
     Route: 048
     Dates: start: 201403, end: 20140428
  2. BRILIQUE [Suspect]
     Indication: MYOCARDIAL INFARCTION
     Route: 048
     Dates: start: 201403, end: 20140502
  3. AXELER [Concomitant]
     Indication: HYPERTENSION
  4. ATACAND [Concomitant]

REACTIONS (4)
  - Cardiac failure [Unknown]
  - Acute pulmonary oedema [Unknown]
  - Cough [Unknown]
  - Dyspnoea [Unknown]
